FAERS Safety Report 15542427 (Version 3)
Quarter: 2018Q4

REPORT INFORMATION
  Report Type: Spontaneous
  Country: FI (occurrence: FI)
  Receive Date: 20181023
  Receipt Date: 20181031
  Transmission Date: 20190205
  Serious: Yes (Death, Hospitalization, Other)
  Sender: FDA-Public Use
  Company Number: FI-ELI_LILLY_AND_COMPANY-FI201810009081

PATIENT
  Age: 38 Year
  Sex: Female

DRUGS (8)
  1. LEPONEX [Suspect]
     Active Substance: CLOZAPINE
     Dosage: 75 MG, DAILY
     Route: 065
     Dates: start: 201807, end: 201807
  2. PERATSIN [Concomitant]
     Active Substance: PERPHENAZINE
     Indication: PRODUCT USED FOR UNKNOWN INDICATION
     Dosage: 4 DF, DAILY
     Route: 065
  3. OPAMOX [Concomitant]
     Active Substance: OXAZEPAM
     Indication: PRODUCT USED FOR UNKNOWN INDICATION
     Dosage: 15 MG, UNKNOWN
     Route: 065
  4. LEPONEX [Suspect]
     Active Substance: CLOZAPINE
     Dosage: 1 DF, DAILY
     Route: 065
     Dates: start: 20180711
  5. VENLAFAXINE [Concomitant]
     Active Substance: VENLAFAXINE HYDROCHLORIDE
     Indication: PRODUCT USED FOR UNKNOWN INDICATION
     Dosage: 2 DF, DAILY
     Route: 065
  6. OLANZAPINE. [Suspect]
     Active Substance: OLANZAPINE
     Indication: PRODUCT USED FOR UNKNOWN INDICATION
     Dosage: UNK UNK, UNKNOWN
     Route: 065
     Dates: start: 201807, end: 201807
  7. LEPONEX [Suspect]
     Active Substance: CLOZAPINE
     Dosage: 375 MG, DAILY
     Route: 065
  8. LEPONEX [Suspect]
     Active Substance: CLOZAPINE
     Indication: SCHIZOAFFECTIVE DISORDER
     Dosage: 1 DF, DAILY
     Route: 065

REACTIONS (10)
  - Anxiety [Fatal]
  - Mental impairment [Fatal]
  - Insomnia [Fatal]
  - Suicidal behaviour [Fatal]
  - Maternal exposure during pregnancy [Fatal]
  - Drug ineffective [Fatal]
  - Congestive cardiomyopathy [Fatal]
  - Cardiac failure acute [Fatal]
  - Cardiac function disturbance postoperative [Fatal]
  - Cardiogenic shock [Fatal]

NARRATIVE: CASE EVENT DATE: 201807
